FAERS Safety Report 7545136-1 (Version None)
Quarter: 2011Q2

REPORT INFORMATION
  Report Type: 
  Country: None (occurrence: None)
  Receive Date: 20110531
  Receipt Date: 20110531
  Transmission Date: 20111010
  Serious: Yes (Hospitalization)
  Sender: FDA-Public Use
  Company Number: US-145183

PATIENT
  Sex: Female
  Weight: 99.7913 kg

DRUGS (16)
  1. PREDNISONE [Concomitant]
  2. TRAMADOL HCL [Concomitant]
  3. PREVACID [Concomitant]
  4. TOPROL-XL [Concomitant]
  5. CALCIUM CARBONATE [Concomitant]
  6. SIMVASTATIN [Concomitant]
  7. WINRHO SDF LIQUID [Suspect]
     Indication: IDIOPATHIC THROMBOCYTOPENIC PURPURA
     Dosage: 40.4 UG/KG TOTAL INTRAVENOUS (NOT OTHERWISE SPECIFIED)
     Route: 042
     Dates: start: 20110422, end: 20110422
  8. FOLIC ACID [Concomitant]
  9. ACTONEL [Concomitant]
  10. DETROL [Concomitant]
  11. VITAMIN D [Concomitant]
  12. VITAMIN B [Concomitant]
  13. NEURONTIN [Concomitant]
  14. TAMOXIFEN CITRATE [Concomitant]
  15. ASCORBIC ACID [Concomitant]
  16. PROCRIT [Concomitant]

REACTIONS (2)
  - HAEMOLYTIC ANAEMIA [None]
  - NAUSEA [None]
